FAERS Safety Report 21562215 (Version 2)
Quarter: 2022Q4

REPORT INFORMATION
  Report Type: Spontaneous
  Country: IT (occurrence: IT)
  Receive Date: 20221107
  Receipt Date: 20221114
  Transmission Date: 20230113
  Serious: Yes (Other)
  Sender: FDA-Public Use
  Company Number: IT-BAYER-2022P018511

PATIENT
  Age: 22 Year
  Sex: Female

DRUGS (1)
  1. DIENOGEST\ETHINYL ESTRADIOL [Suspect]
     Active Substance: DIENOGEST\ETHINYL ESTRADIOL
     Indication: Contraception
     Dosage: 1 DF, QD
     Route: 048

REACTIONS (16)
  - Ovarian neoplasm [None]
  - Diarrhoea [Recovered/Resolved]
  - Disorientation [Not Recovered/Not Resolved]
  - Nausea [Not Recovered/Not Resolved]
  - Premenstrual syndrome [Not Recovered/Not Resolved]
  - Abdominal distension [Not Recovered/Not Resolved]
  - Abnormal withdrawal bleeding [Recovered/Resolved]
  - Menstruation delayed [Not Recovered/Not Resolved]
  - Pollakiuria [None]
  - Abdominal pain upper [None]
  - Abdominal rigidity [None]
  - Stress [None]
  - Back pain [None]
  - Irritable bowel syndrome [None]
  - Anxiety [None]
  - Uterine enlargement [None]

NARRATIVE: CASE EVENT DATE: 20220501
